FAERS Safety Report 18904502 (Version 1)
Quarter: 2021Q1

REPORT INFORMATION
  Report Type: Spontaneous
  Country: US (occurrence: US)
  Receive Date: 20210217
  Receipt Date: 20210217
  Transmission Date: 20210420
  Serious: Yes (Hospitalization)
  Sender: FDA-Public Use
  Company Number: None

PATIENT
  Age: 65 Year
  Sex: Male
  Weight: 66 kg

DRUGS (2)
  1. ACETAMINOPHEN / DIPHENHYDRAMINE (ACETAMINOPHEN 500MG/DIPHENHYDRAMINE [Suspect]
     Active Substance: ACETAMINOPHEN\DIPHENHYDRAMINE HYDROCHLORIDE
     Indication: PAIN
     Dosage: ?          OTHER STRENGTH:500MG, 25MG/15ML;?
  2. ACETAMINOPHEN / DIPHENHYDRAMINE (ACETAMINOPHEN 500MG/DIPHENHYDRAMINE [Suspect]
     Active Substance: ACETAMINOPHEN\DIPHENHYDRAMINE HYDROCHLORIDE
     Indication: INSOMNIA
     Dosage: ?          OTHER STRENGTH:500MG, 25MG/15ML;?

REACTIONS (1)
  - Suicide attempt [None]

NARRATIVE: CASE EVENT DATE: 20201102
